FAERS Safety Report 10306348 (Version 1)
Quarter: 2014Q3

REPORT INFORMATION
  Report Type: Spontaneous
  Country: US (occurrence: US)
  Receive Date: 20140715
  Receipt Date: 20140715
  Transmission Date: 20150326
  Serious: Yes (Other)
  Sender: FDA-Public Use
  Company Number: US-BAYER-2014-101824

PATIENT

DRUGS (7)
  1. CENTRUM [Concomitant]
     Active Substance: VITAMINS
  2. PREVACID [Concomitant]
     Active Substance: LANSOPRAZOLE
  3. VITAMIN B COMPLEX [Concomitant]
     Active Substance: CYANOCOBALAMIN\DEXPANTHENOL\NIACINAMIDE\PYRIDOXINE HYDROCHLORIDE\RIBOFLAVIN 5^-PHOSPHATE SODIUM\THIAMINE HYDROCHLORIDE\VITAMIN B COMPLEX
  4. ATENOLOL. [Concomitant]
     Active Substance: ATENOLOL
  5. SUTENT [Suspect]
     Active Substance: SUNITINIB MALATE
     Indication: RENAL CANCER RECURRENT
     Dosage: 25 MG, QD (FOR 4 WEEKS WITH TWO WEEKS OFF)
     Dates: start: 20140520
  6. BAYER LOW DOSE [Suspect]
     Active Substance: ASPIRIN
     Dosage: 2 DF, UNK
  7. LOSARTAN [Concomitant]
     Active Substance: LOSARTAN

REACTIONS (16)
  - Feeling cold [None]
  - Exercise tolerance decreased [None]
  - Nausea [None]
  - Anaemia [None]
  - Fatigue [None]
  - Blood thyroid stimulating hormone increased [None]
  - Haemorrhage [None]
  - Hypotension [None]
  - Abdominal pain [None]
  - Weight decreased [None]
  - Ascites [None]
  - Asthenia [None]
  - Blood disorder [None]
  - Blood pressure increased [None]
  - Loss of consciousness [None]
  - Blood glucose increased [None]
